FAERS Safety Report 5728912-7 (Version None)
Quarter: 2008Q2

REPORT INFORMATION
  Report Type: 
  Country: None (occurrence: None)
  Receive Date: 20080505
  Receipt Date: 20080505
  Transmission Date: 20081010
  Serious: No
  Sender: FDA-Public Use
  Company Number: None

PATIENT
  Age: 57 Year
  Sex: Female

DRUGS (3)
  1. ANZEMET [Suspect]
     Dosage: INJECTABLE
  2. DILAUDID [Suspect]
     Dosage: INJECTABLE
  3. PHENERGAN [Suspect]
     Dosage: INJECTABLE

REACTIONS (4)
  - CIRCUMSTANCE OR INFORMATION CAPABLE OF LEADING TO MEDICATION ERROR [None]
  - MALAISE [None]
  - MEDICATION ERROR [None]
  - VOMITING [None]
